FAERS Safety Report 15559426 (Version 1)
Quarter: 2018Q4

REPORT INFORMATION
  Report Type: Spontaneous
  Country: US (occurrence: US)
  Receive Date: 20181029
  Receipt Date: 20181029
  Transmission Date: 20190205
  Serious: No
  Sender: FDA-Public Use
  Company Number: US-AMGEN-USASP2018150961

PATIENT
  Age: 66 Year
  Sex: Male

DRUGS (3)
  1. REVLIMID [Concomitant]
     Active Substance: LENALIDOMIDE
     Dosage: UNK
  2. KYPROLIS [Suspect]
     Active Substance: CARFILZOMIB
     Indication: PLASMA CELL MYELOMA
     Dosage: 20 MG/M2, ON DAY 1, 8 AND 15 FOR FIRST CYCLE
     Route: 042
  3. KYPROLIS [Suspect]
     Active Substance: CARFILZOMIB
     Dosage: 70 MG/M2,  ON DAY 1, 8 AND 15 SECOND CYCLE ONWARDS
     Route: 042

REACTIONS (1)
  - Intercepted product preparation error [Unknown]

NARRATIVE: CASE EVENT DATE: 20181012
